FAERS Safety Report 5272767-4 (Version None)
Quarter: 2007Q1

REPORT INFORMATION
  Report Type: 
  Country: None (occurrence: None)
  Receive Date: 20070322
  Receipt Date: 20070316
  Transmission Date: 20070707
  Serious: Yes (Hospitalization)
  Sender: FDA-Public Use
  Company Number: JP-JPN-A200700834

PATIENT
  Age: 50 Year
  Sex: Female
  Weight: 50 kg

DRUGS (4)
  1. ZEFIX [Suspect]
     Indication: HEPATITIS B
     Dosage: 100MG PER DAY
     Route: 048
     Dates: start: 20001218
  2. HEPSERA [Suspect]
     Indication: HEPATITIS B
     Dosage: 10MG PER DAY
     Route: 048
     Dates: start: 20050713
  3. SG [Suspect]
     Indication: MIGRAINE
     Dosage: 1G PER DAY
     Route: 048
     Dates: start: 20061121, end: 20070205
  4. GASTER [Concomitant]
     Indication: GASTRITIS
     Dosage: 80MG PER DAY
     Route: 048
     Dates: start: 20070202, end: 20070205

REACTIONS (4)
  - IDIOPATHIC THROMBOCYTOPENIC PURPURA [None]
  - MALAISE [None]
  - PLATELET COUNT DECREASED [None]
  - PURPURA [None]
